FAERS Safety Report 8586916-3 (Version None)
Quarter: 2012Q3

REPORT INFORMATION
  Report Type: 
  Country: None (occurrence: None)
  Receive Date: 20120810
  Receipt Date: 20120803
  Transmission Date: 20120928
  Serious: Yes (Other)
  Sender: FDA-Public Use
  Company Number: CHPA2012US015845

PATIENT
  Age: 55 Year
  Sex: Male

DRUGS (2)
  1. BENEFIBER W/ WHEAT DEXTRIN [Suspect]
     Indication: HAEMORRHOIDS
     Dosage: 2 TSP, IN THE MORNING
     Route: 048
     Dates: start: 20100101
  2. STOOL SOFTENER [Concomitant]
     Dosage: UNK, QD

REACTIONS (3)
  - THERAPEUTIC RESPONSE UNEXPECTED [None]
  - HIATUS HERNIA [None]
  - OFF LABEL USE [None]
